FAERS Safety Report 9245502 (Version 1)
Quarter: 2013Q2

REPORT INFORMATION
  Report Type: Spontaneous
  Country: JP (occurrence: JP)
  Receive Date: 20130422
  Receipt Date: 20130422
  Transmission Date: 20140414
  Serious: Yes (Hospitalization)
  Sender: FDA-Public Use
  Company Number: JP-ASTELLAS-2013JP005211

PATIENT
  Age: 44 Year
  Sex: Female

DRUGS (4)
  1. PROGRAF [Suspect]
     Indication: RHEUMATOID ARTHRITIS
     Dosage: 2 MG, UID/QD
     Route: 048
     Dates: start: 20110222, end: 20130313
  2. SIMPONI [Suspect]
     Indication: RHEUMATOID ARTHRITIS
     Dosage: UNK
     Route: 058
     Dates: start: 20120523, end: 20120816
  3. SIMPONI [Suspect]
     Dosage: UNK
     Route: 058
     Dates: start: 20120912, end: 20130313
  4. PREDNISOLONE [Suspect]
     Indication: RHEUMATOID ARTHRITIS
     Dosage: 4 MG, UID/QD
     Route: 048
     Dates: start: 20120509

REACTIONS (2)
  - Pneumococcal infection [Recovered/Resolved]
  - Pleurisy [Recovered/Resolved]
